FAERS Safety Report 9823768 (Version 2)
Quarter: 2014Q1

REPORT INFORMATION
  Report Type: Spontaneous
  Country: US (occurrence: US)
  Receive Date: 20140116
  Receipt Date: 20140116
  Transmission Date: 20141002
  Serious: No
  Sender: FDA-Public Use
  Company Number: US-GILEAD-2011-0040110

PATIENT
  Age: 49 Year
  Sex: Female

DRUGS (17)
  1. LETAIRIS [Suspect]
     Indication: PULMONARY HYPERTENSION
     Route: 048
     Dates: start: 20110521
  2. LETAIRIS [Suspect]
     Indication: RHEUMATOID ARTHRITIS
  3. ALDACTONE [Suspect]
  4. VENTAVIS [Concomitant]
  5. ADCIRCA [Concomitant]
  6. SPIRONOLACTONE [Concomitant]
  7. FUROSEMIDE [Concomitant]
  8. PREDNISONE [Concomitant]
  9. PANTOPRAZOLE [Concomitant]
  10. COLACE [Concomitant]
  11. HYDROCODONE [Concomitant]
  12. ENBREL [Concomitant]
  13. CELEBREX [Concomitant]
  14. BACLOFEN [Concomitant]
  15. DANTROLENE [Concomitant]
  16. LEXAPRO [Concomitant]
  17. ALPRAZOLAM [Concomitant]

REACTIONS (4)
  - Hypotension [Unknown]
  - Back pain [Unknown]
  - Pulmonary hypertension [Unknown]
  - Nausea [Unknown]
